FAERS Safety Report 5143131-3 (Version None)
Quarter: 2006Q4

REPORT INFORMATION
  Report Type: 
  Country: None (occurrence: None)
  Receive Date: 20061031
  Receipt Date: 20061031
  Transmission Date: 20070319
  Serious: No
  Sender: FDA-Public Use
  Company Number: None

PATIENT
  Sex: Female
  Weight: 61.2356 kg

DRUGS (1)
  1. SYNTHROID [Suspect]
     Dosage: 100MCG  QD  PO
     Route: 048
     Dates: start: 20060901, end: 20061030

REACTIONS (3)
  - ALOPECIA [None]
  - NAUSEA [None]
  - PAIN [None]
